FAERS Safety Report 5391605-2 (Version None)
Quarter: 2007Q3

REPORT INFORMATION
  Report Type: 
  Country: None (occurrence: None)
  Receive Date: 20070719
  Receipt Date: 20070710
  Transmission Date: 20080115
  Serious: Yes (Life-Threatening)
  Sender: FDA-Public Use
  Company Number: JP-PFIZER INC-2007057585

PATIENT
  Age: 77 Year
  Sex: Female

DRUGS (2)
  1. SULPERAZON [Suspect]
     Indication: INFECTION
     Route: 042
     Dates: start: 20070623, end: 20070627
  2. SOLDEM 1 [Concomitant]

REACTIONS (2)
  - DRUG INEFFECTIVE [None]
  - DYSPNOEA [None]
